FAERS Safety Report 22375891 (Version 1)
Quarter: 2023Q2

REPORT INFORMATION
  Report Type: Spontaneous
  Country: US (occurrence: US)
  Receive Date: 20230527
  Receipt Date: 20230527
  Transmission Date: 20230721
  Serious: Yes (Other)
  Sender: FDA-Public Use
  Company Number: US-Shilpa Medicare Limited-SML-US-2023-00660

PATIENT
  Age: 51 Year
  Sex: Female

DRUGS (1)
  1. IMATINIB [Suspect]
     Active Substance: IMATINIB
     Indication: Chronic myeloid leukaemia
     Dosage: 800MG DAILY
     Route: 065
     Dates: start: 199903

REACTIONS (4)
  - Intracranial pressure increased [Unknown]
  - Headache [Unknown]
  - Ocular discomfort [Unknown]
  - Visual impairment [Unknown]
